FAERS Safety Report 8006192-X (Version None)
Quarter: 2011Q4

REPORT INFORMATION
  Report Type: 
  Country: None (occurrence: None)
  Receive Date: 20111226
  Receipt Date: 20111101
  Transmission Date: 20120403
  Serious: Yes (Death, Other)
  Sender: FDA-Public Use
  Company Number: US-PURDUE-USA-2007-0028309

PATIENT
  Sex: Female

DRUGS (1)
  1. OXYCONTIN [Suspect]
     Indication: DRUG ABUSE
     Dosage: 80 MG, TID
     Dates: start: 20040101, end: 20070117

REACTIONS (12)
  - DELUSIONAL DISORDER, UNSPECIFIED TYPE [None]
  - OBSESSIVE-COMPULSIVE DISORDER [None]
  - DRUG ABUSE [None]
  - ANXIETY [None]
  - INTENTIONAL OVERDOSE [None]
  - DRUG DEPENDENCE [None]
  - DRUG WITHDRAWAL SYNDROME [None]
  - PARANOIA [None]
  - ANHEDONIA [None]
  - SUICIDE ATTEMPT [None]
  - PAIN [None]
  - DEPRESSION [None]
